FAERS Safety Report 8115357-8 (Version None)
Quarter: 2012Q1

REPORT INFORMATION
  Report Type: 
  Country: None (occurrence: None)
  Receive Date: 20120206
  Receipt Date: 20120206
  Transmission Date: 20120608
  Serious: No
  Sender: FDA-Public Use
  Company Number: None

PATIENT
  Age: 28 Year
  Sex: Female
  Weight: 56.699 kg

DRUGS (1)
  1. TRIVORA-21 [Suspect]
     Indication: CONTRACEPTION
     Route: 048
     Dates: start: 20120105, end: 20120130

REACTIONS (4)
  - MATERNAL EXPOSURE DURING PREGNANCY [None]
  - POOR QUALITY DRUG ADMINISTERED [None]
  - PREGNANCY ON ORAL CONTRACEPTIVE [None]
  - PRODUCT QUALITY ISSUE [None]
